FAERS Safety Report 24557448 (Version 1)
Quarter: 2024Q4

REPORT INFORMATION
  Report Type: Spontaneous
  Country: US (occurrence: US)
  Receive Date: 20241028
  Receipt Date: 20241028
  Transmission Date: 20250114
  Serious: Yes (Other)
  Sender: AUROBINDO
  Company Number: US-MLMSERVICE-20241009-PI221785-00218-1

PATIENT
  Age: 60 Year
  Sex: Male

DRUGS (6)
  1. METHOTREXATE [Suspect]
     Active Substance: METHOTREXATE
     Indication: Chronic lymphocytic leukaemia
     Dosage: 3000 MG/M2 (TWO CYCLES)
     Route: 042
  2. METHOTREXATE [Suspect]
     Active Substance: METHOTREXATE
     Indication: Metastatic neoplasm
     Dosage: 12 MILLIGRAM (TRIPLE)
     Route: 037
  3. HYDROCORTISONE [Concomitant]
     Active Substance: HYDROCORTISONE
     Indication: Chronic lymphocytic leukaemia
     Dosage: 15 MILLIGRAM
     Route: 065
  4. HYDROCORTISONE [Concomitant]
     Active Substance: HYDROCORTISONE
     Indication: Metastatic neoplasm
  5. CYTARABINE [Concomitant]
     Active Substance: CYTARABINE
     Indication: Chronic lymphocytic leukaemia
     Dosage: 50 MILLIGRAM
     Route: 065
  6. CYTARABINE [Concomitant]
     Active Substance: CYTARABINE
     Indication: Metastatic neoplasm

REACTIONS (2)
  - Neurotoxicity [Recovered/Resolved]
  - Leukoencephalopathy [Recovered/Resolved]
